FAERS Safety Report 5583743-6 (Version None)
Quarter: 2008Q1

REPORT INFORMATION
  Report Type: 
  Country: None (occurrence: None)
  Receive Date: 20080102
  Receipt Date: 20071205
  Transmission Date: 20080703
  Serious: Yes (Hospitalization, Other)
  Sender: FDA-Public Use
  Company Number: ENT 2007-0089

PATIENT
  Sex: Female

DRUGS (7)
  1. COMTAN [Suspect]
     Indication: PARKINSON'S DISEASE
     Dosage: 400 MG (100 MG,4 IN 1 D)
     Route: 048
     Dates: start: 20070519, end: 20070501
  2. DEPAS [Concomitant]
  3. FP (SELEGILINE) [Concomitant]
  4. NEO DOPASTON [Concomitant]
  5. CABERGOLINE [Concomitant]
  6. RETICOLAN [Concomitant]
  7. SELBEX [Concomitant]

REACTIONS (5)
  - CRYPTOGENIC ORGANISING PNEUMONIA [None]
  - INTERSTITIAL LUNG DISEASE [None]
  - LYMPHOCYTE STIMULATION TEST POSITIVE [None]
  - PRODUCTIVE COUGH [None]
  - RETINAL HAEMORRHAGE [None]
